FAERS Safety Report 8905189 (Version 1)
Quarter: 2012Q4

REPORT INFORMATION
  Report Type: 
  Country: CA (occurrence: CA)
  Receive Date: 20121111
  Receipt Date: 20121111
  Transmission Date: 20130627
  Serious: Yes (Other)
  Sender: FDA-Public Use
  Company Number: PHMT2006CA00488

PATIENT
  Sex: Female

DRUGS (13)
  1. SANDOSTATIN LAR [Suspect]
     Indication: NEUROENDOCRINE TUMOUR
     Dosage: 20 mg, every 4 weeks
     Dates: start: 20051107
  2. SANDOSTATIN LAR [Suspect]
     Dosage: 30 mg, QMO
  3. ASA [Concomitant]
  4. CARDIZEM [Concomitant]
  5. DIABETA [Concomitant]
  6. GLUCOSAMINE SULFATE [Concomitant]
  7. LOSEC [Concomitant]
  8. METFORMIN HYDROCHLORIDE [Concomitant]
  9. NYSTATIN [Concomitant]
  10. SANDOSTATIN [Concomitant]
     Route: 058
  11. TEMAZEPAM [Concomitant]
  12. GRAVOL [Concomitant]
  13. MORPHINE [Concomitant]
     Indication: PAIN IN EXTREMITY

REACTIONS (31)
  - Malignant neoplasm progression [Unknown]
  - Diarrhoea [Not Recovered/Not Resolved]
  - Nausea [Not Recovered/Not Resolved]
  - Dizziness [Not Recovered/Not Resolved]
  - Fatigue [Not Recovered/Not Resolved]
  - Decreased appetite [Not Recovered/Not Resolved]
  - Flushing [Not Recovered/Not Resolved]
  - Blood pressure increased [Unknown]
  - Hypoglycaemia [Not Recovered/Not Resolved]
  - Anxiety [Unknown]
  - Dyspnoea [Unknown]
  - Insomnia [Unknown]
  - Abdominal pain [Unknown]
  - Productive cough [Unknown]
  - Injection site reaction [Unknown]
  - Increased appetite [Unknown]
  - Skin reaction [Unknown]
  - Oedema peripheral [Unknown]
  - Hyperglycaemia [Unknown]
  - Herpes zoster [Unknown]
  - Candidiasis [Unknown]
  - Gastrointestinal disorder [Unknown]
  - Pain in extremity [Unknown]
  - Flatulence [Unknown]
  - Blood glucose increased [Unknown]
  - Pruritus [Unknown]
  - Rash [Unknown]
  - Abdominal distension [Unknown]
  - Abdominal discomfort [Unknown]
  - Neuralgia [Unknown]
  - Drug ineffective [Not Recovered/Not Resolved]
